FAERS Safety Report 26172900 (Version 1)
Quarter: 2025Q4

REPORT INFORMATION
  Report Type: Spontaneous
  Country: JP (occurrence: JP)
  Receive Date: 20251218
  Receipt Date: 20251218
  Transmission Date: 20260118
  Serious: Yes (Other)
  Sender: ASTELLAS
  Company Number: JP-ASTELLAS-2025-AER-069641

PATIENT
  Age: 49 Year
  Sex: Female

DRUGS (4)
  1. ENFORTUMAB VEDOTIN [Suspect]
     Active Substance: ENFORTUMAB VEDOTIN
     Indication: Transitional cell carcinoma recurrent
     Route: 065
     Dates: start: 20241220
  2. ENFORTUMAB VEDOTIN [Suspect]
     Active Substance: ENFORTUMAB VEDOTIN
     Route: 065
     Dates: start: 20250426
  3. NIVOLUMAB [Suspect]
     Active Substance: NIVOLUMAB
     Indication: Adjuvant therapy
     Route: 065
     Dates: start: 202409, end: 202412
  4. PEMBROLIZUMAB [Suspect]
     Active Substance: PEMBROLIZUMAB
     Indication: Transitional cell carcinoma recurrent
     Route: 065
     Dates: start: 20241220

REACTIONS (3)
  - Drug-induced liver injury [Unknown]
  - Alopecia [Unknown]
  - Taste disorder [Unknown]

NARRATIVE: CASE EVENT DATE: 20250101
